APPROVED DRUG PRODUCT: MYCOSTATIN
Active Ingredient: NYSTATIN
Strength: 100,000 UNITS/GM **Federal Register determination that product was not discontinued or withdrawn for safety or effectiveness reasons**
Dosage Form/Route: OINTMENT;TOPICAL
Application: A060571 | Product #001
Applicant: DELCOR ASSET CORP
Approved: Approved Prior to Jan 1, 1982 | RLD: No | RS: No | Type: DISCN